FAERS Safety Report 16513878 (Version 2)
Quarter: 2019Q3

REPORT INFORMATION
  Report Type: Spontaneous
  Country: IT (occurrence: IT)
  Receive Date: 20190702
  Receipt Date: 20190912
  Transmission Date: 20191004
  Serious: Yes (Other)
  Sender: FDA-Public Use
  Company Number: IT-MYLANLABS-2019M1060270

PATIENT
  Age: 78 Year
  Sex: Female

DRUGS (5)
  1. VITAMIN D                          /00107901/ [Suspect]
     Active Substance: ERGOCALCIFEROL
     Indication: THYROID CANCER
     Dosage: 50000 U, QMO
     Route: 048
  2. RISEDRONATE SODIUM. [Suspect]
     Active Substance: RISEDRONATE SODIUM
     Indication: THYROID CANCER
     Dosage: 35 MG, QW
     Route: 065
  3. CALCIUM [Suspect]
     Active Substance: CALCIUM
     Indication: THYROID CANCER
     Dosage: 1 G, QMO
     Route: 048
  4. RAMIPRIL. [Concomitant]
     Active Substance: RAMIPRIL
     Indication: HYPERTENSION
     Dosage: 5 MG, QD
     Route: 065
  5. TERIPARATIDE [Suspect]
     Active Substance: TERIPARATIDE
     Indication: PRODUCT USED FOR UNKNOWN INDICATION
     Dosage: 20 MICROGRAM, QD
     Route: 065

REACTIONS (3)
  - Ulcer [Recovered/Resolved]
  - Pain [Recovered/Resolved]
  - Calciphylaxis [Recovered/Resolved]
